FAERS Safety Report 4647904-2 (Version None)
Quarter: 2005Q2

REPORT INFORMATION
  Report Type: 
  Country: None (occurrence: None)
  Receive Date: 20050426
  Receipt Date: 20050426
  Transmission Date: 20051028
  Serious: No
  Sender: FDA-Public Use
  Company Number: None

PATIENT
  Age: 59 Year
  Sex: Male

DRUGS (1)
  1. PHENYTOIN EXTENDED CAPS 1560; 100MG [Suspect]
     Indication: CONVULSION
     Dosage: TAKE 2 CAPSULES EVERY MORNING AND 3 CAPSULES EVERY EVENING
     Dates: start: 20050130

REACTIONS (2)
  - CONVULSION [None]
  - THERAPEUTIC RESPONSE UNEXPECTED WITH DRUG SUBSTITUTION [None]
